FAERS Safety Report 17761615 (Version 1)
Quarter: 2020Q2

REPORT INFORMATION
  Report Type: Spontaneous
  Country: ES (occurrence: ES)
  Receive Date: 20200508
  Receipt Date: 20200508
  Transmission Date: 20200714
  Serious: Yes (Death, Hospitalization)
  Sender: FDA-Public Use
  Company Number: ES-CADILA HEALTHCARE LIMITED-ES-ZYDUS-026570

PATIENT

DRUGS (4)
  1. DUROGESIC MATRIX [Suspect]
     Active Substance: FENTANYL
     Indication: BACK PAIN
     Dosage: 1/2 PATCH / 72 HOURS
     Route: 062
     Dates: start: 20170626, end: 20170628
  2. GABAPENTINE [Suspect]
     Active Substance: GABAPENTIN
     Indication: BACK PAIN
     Dosage: 300 MILLIGRAM,1-1-1,(INTERVAL :3 DAYS)
     Route: 048
     Dates: start: 20170626
  3. KEPPRA [Suspect]
     Active Substance: LEVETIRACETAM
     Indication: PRODUCT USED FOR UNKNOWN INDICATION
     Dosage: 500 MILLIGRAM,(INTERVAL :2 DAYS)
     Route: 048
     Dates: start: 2017
  4. RISPERDAL [Suspect]
     Active Substance: RISPERIDONE
     Indication: PRODUCT USED FOR UNKNOWN INDICATION
     Dosage: 1 MILLIGRAM,1/2 -0-1/2
     Route: 048
     Dates: start: 2010

REACTIONS (1)
  - Depressed level of consciousness [Fatal]

NARRATIVE: CASE EVENT DATE: 20170627
